FAERS Safety Report 5526293-5 (Version None)
Quarter: 2007Q4

REPORT INFORMATION
  Report Type: 
  Country: None (occurrence: None)
  Receive Date: 20071121
  Receipt Date: 20071121
  Transmission Date: 20080405
  Serious: Yes (Hospitalization)
  Sender: FDA-Public Use
  Company Number: None

PATIENT
  Sex: Male
  Weight: 80.4 kg

DRUGS (4)
  1. FLUOROURACIL [Suspect]
     Dosage: 5495 MG
  2. ERBITUX [Suspect]
     Dosage: 1000 MG
  3. LEUCOVORIN CALCIUM [Suspect]
     Dosage: 775 MG
  4. ELOXATIN [Suspect]
     Dosage: 170 MG

REACTIONS (2)
  - DISEASE PROGRESSION [None]
  - PULMONARY EMBOLISM [None]
